FAERS Safety Report 16451175 (Version 4)
Quarter: 2019Q4

REPORT INFORMATION
  Report Type: Spontaneous
  Country: US (occurrence: US)
  Receive Date: 20190619
  Receipt Date: 20191202
  Transmission Date: 20200122
  Serious: No
  Sender: FDA-Public Use
  Company Number: US-PFIZER INC-2019258098

PATIENT
  Age: 70 Year
  Sex: Male
  Weight: 85 kg

DRUGS (7)
  1. TIKOSYN [Suspect]
     Active Substance: DOFETILIDE
     Dosage: 250 UG, UNK (FOR THREE MONTHS)
  2. TIKOSYN [Suspect]
     Active Substance: DOFETILIDE
     Dosage: 250 UG, 2X/DAY
     Dates: start: 20190510
  3. TIKOSYN [Suspect]
     Active Substance: DOFETILIDE
     Dosage: 250 (UNKNOWN UNIT), 2X/DAY
  4. TIKOSYN [Suspect]
     Active Substance: DOFETILIDE
     Dosage: 500 (UNKNOWN UNIT), 2X/DAY
  5. XARELTO [Concomitant]
     Active Substance: RIVAROXABAN
     Dosage: UNK
     Dates: start: 20130601
  6. TIKOSYN [Suspect]
     Active Substance: DOFETILIDE
     Dosage: 500 UG, 2X/DAY
  7. TIKOSYN [Suspect]
     Active Substance: DOFETILIDE
     Indication: ATRIAL FIBRILLATION
     Dosage: 250 UG, 2X/DAY
     Route: 048
     Dates: start: 201601

REACTIONS (2)
  - Drug ineffective [Recovered/Resolved]
  - Body height decreased [Recovered/Resolved]

NARRATIVE: CASE EVENT DATE: 20190530
